FAERS Safety Report 4306150-2 (Version None)
Quarter: 2004Q1

REPORT INFORMATION
  Report Type: 
  Country: None (occurrence: None)
  Receive Date: 20040225
  Receipt Date: 20030303
  Transmission Date: 20041129
  Serious: No
  Sender: FDA-Public Use
  Company Number: US-BRISTOL-MYERS SQUIBB COMPANY-12204699

PATIENT
  Age: 2 Year

DRUGS (1)
  1. EXCEDRIN (MIGRAINE) [Suspect]
     Indication: ACCIDENTAL EXPOSURE
     Route: 048
     Dates: start: 20030303

REACTIONS (1)
  - ACCIDENTAL EXPOSURE [None]
